FAERS Safety Report 22711684 (Version 4)
Quarter: 2023Q4

REPORT INFORMATION
  Report Type: Spontaneous
  Country: US (occurrence: US)
  Receive Date: 20230717
  Receipt Date: 20231120
  Transmission Date: 20240110
  Serious: Yes (Death, Other)
  Sender: FDA-Public Use
  Company Number: US-PFIZER INC-202300248673

PATIENT
  Age: 74 Year
  Sex: Male

DRUGS (4)
  1. VYNDAMAX [Suspect]
     Active Substance: TAFAMIDIS
     Indication: Cardiac amyloidosis
     Dosage: 61 MG, 1X/DAY
     Route: 048
  2. ELIQUIS [Suspect]
     Active Substance: APIXABAN
     Dosage: 5 MILLIGRAMS AM AND PM
  3. ELIQUIS [Suspect]
     Active Substance: APIXABAN
     Dosage: CHANGES TO THE LAST MONTH 2 AND HALF
  4. TORSEMIDE [Concomitant]
     Active Substance: TORSEMIDE
     Dosage: 100 MILLIGRAMS, TWICE A DAY AM AND PM

REACTIONS (6)
  - Renal failure [Fatal]
  - Pneumonia [Unknown]
  - Haemorrhage [Unknown]
  - Cardiac disorder [Unknown]
  - Dyspnoea [Unknown]
  - Asthenia [Unknown]
